FAERS Safety Report 6412947-5 (Version None)
Quarter: 2009Q4

REPORT INFORMATION
  Report Type: 
  Country: None (occurrence: None)
  Receive Date: 20091023
  Receipt Date: 20091013
  Transmission Date: 20100525
  Serious: Yes (Other)
  Sender: FDA-Public Use
  Company Number: US-JNJCH-2009027701

PATIENT

DRUGS (3)
  1. ASPIRIN [Suspect]
     Indication: PROPHYLAXIS
     Dosage: TEXT:75-162 MG DAILY
     Route: 065
  2. CLOPIDOGREL [Suspect]
     Indication: PROPHYLAXIS
     Dosage: TEXT:75 MG DAILY
     Route: 065
  3. CLOPIDOGREL [Suspect]
     Indication: ARTERIAL THROMBOSIS

REACTIONS (1)
  - THROMBOTIC THROMBOCYTOPENIC PURPURA [None]
